FAERS Safety Report 9246389 (Version 1)
Quarter: 2013Q2

REPORT INFORMATION
  Report Type: Report from Study
  Country: CA (occurrence: CA)
  Receive Date: 20130422
  Receipt Date: 20130422
  Transmission Date: 20140414
  Serious: Yes (Hospitalization)
  Sender: FDA-Public Use
  Company Number: CA-JNJFOC-20130408816

PATIENT
  Age: 74 Year
  Sex: Male
  Weight: 64 kg

DRUGS (8)
  1. REMICADE [Suspect]
     Indication: CROHN^S DISEASE
     Route: 042
     Dates: start: 20121211
  2. ASACOL [Concomitant]
     Route: 065
  3. ENTOCORT [Concomitant]
     Route: 065
  4. TECTA [Concomitant]
     Route: 065
  5. FLAGYL [Concomitant]
     Route: 065
  6. CIPRO [Concomitant]
     Route: 065
  7. METOPROLOL [Concomitant]
     Route: 065
  8. CITALOPRAM [Concomitant]
     Route: 065

REACTIONS (1)
  - Hip fracture [Unknown]
